FAERS Safety Report 15295040 (Version 8)
Quarter: 2020Q2

REPORT INFORMATION
  Report Type: Spontaneous
  Country: US (occurrence: US)
  Receive Date: 20180820
  Receipt Date: 20200528
  Transmission Date: 20200713
  Serious: Yes (Other)
  Sender: FDA-Public Use
  Company Number: US-PFIZER INC-2018334808

PATIENT
  Age: 78 Year
  Sex: Female

DRUGS (1)
  1. LYRICA [Suspect]
     Active Substance: PREGABALIN
     Indication: NEUROPATHY PERIPHERAL
     Dosage: 300 MG, ONE A DAY (QPM (EVERY AFTERNOON OR EVENING)
     Route: 048
     Dates: start: 20190530

REACTIONS (4)
  - Insomnia [Unknown]
  - Drug dependence [Unknown]
  - Hypoacusis [Unknown]
  - Malaise [Unknown]
